FAERS Safety Report 16189563 (Version 1)
Quarter: 2019Q2

REPORT INFORMATION
  Report Type: Spontaneous
  Country: US (occurrence: US)
  Receive Date: 20190412
  Receipt Date: 20190412
  Transmission Date: 20190711
  Serious: Yes (Death, Hospitalization)
  Sender: FDA-Public Use
  Company Number: US-TEVA-2019-US-1034956

PATIENT
  Age: 71 Year
  Sex: Female

DRUGS (3)
  1. QUETIAPINE FUMARATE. [Suspect]
     Active Substance: QUETIAPINE FUMARATE
     Dosage: 300 MILLIGRAM DAILY;
     Route: 065
  2. DIVALPROEX [Suspect]
     Active Substance: DIVALPROEX SODIUM
     Indication: DEMENTIA
     Route: 065
  3. QUETIAPINE FUMARATE. [Suspect]
     Active Substance: QUETIAPINE FUMARATE
     Indication: DEMENTIA
     Dosage: 200 MILLIGRAM DAILY;
     Route: 065
     Dates: start: 20190107, end: 20190327

REACTIONS (6)
  - Urinary tract infection [Unknown]
  - Hypersomnia [Unknown]
  - Loss of personal independence in daily activities [Unknown]
  - Urinary retention [Unknown]
  - Death [Fatal]
  - General physical condition decreased [Unknown]

NARRATIVE: CASE EVENT DATE: 2019
